FAERS Safety Report 5081023-9 (Version None)
Quarter: 2006Q3

REPORT INFORMATION
  Report Type: 
  Country: None (occurrence: None)
  Receive Date: 20060810
  Receipt Date: 20060728
  Transmission Date: 20061208
  Serious: Yes (Death)
  Sender: FDA-Public Use
  Company Number: 111765ISR

PATIENT
  Age: 69 Year
  Sex: Male

DRUGS (3)
  1. SIMVASTATIN [Suspect]
     Dosage: 40 MILLIGRAM ORAL
     Route: 048
  2. ALLOPURINOL [Concomitant]
  3. FUROSEMIDE [Concomitant]

REACTIONS (4)
  - CARDIAC ARREST [None]
  - DIARRHOEA [None]
  - RENAL FAILURE ACUTE [None]
  - VOMITING [None]
